FAERS Safety Report 9286373 (Version 1)
Quarter: 2013Q2

REPORT INFORMATION
  Report Type: Spontaneous
  Country: AU (occurrence: None)
  Receive Date: 20130508
  Receipt Date: 20130508
  Transmission Date: 20140414
  Serious: Yes (Other)
  Sender: FDA-Public Use
  Company Number: SYM-2013-03617

PATIENT
  Age: 43 Year
  Sex: Male

DRUGS (2)
  1. FLAGYL [Suspect]
     Indication: PRODUCT USED FOR UNKNOWN INDICATION
     Dates: start: 20130115, end: 20130116
  2. BENPEN (BENZYLOPENICILLIN SODIUM) [Concomitant]

REACTIONS (5)
  - Diplopia [None]
  - Dyskinesia [None]
  - Gait disturbance [None]
  - Tremor [None]
  - Nystagmus [None]
